FAERS Safety Report 7592370-0 (Version None)
Quarter: 2011Q3

REPORT INFORMATION
  Report Type: 
  Country: None (occurrence: None)
  Receive Date: 20110705
  Receipt Date: 20110705
  Transmission Date: 20111222
  Serious: Yes (Life-Threatening)
  Sender: FDA-Public Use
  Company Number: None

PATIENT
  Sex: Female
  Weight: 151.0478 kg

DRUGS (1)
  1. FLEBOGAMMA [Suspect]
     Indication: IMMUNE SYSTEM DISORDER
     Dosage: 10GRAMS IN 100CC MONTHLY IV
     Route: 042
     Dates: start: 20110701, end: 20110701

REACTIONS (6)
  - HEAD INJURY [None]
  - DYSPNOEA [None]
  - PERIORBITAL HAEMATOMA [None]
  - FALL [None]
  - CONVULSION [None]
  - HEADACHE [None]
